FAERS Safety Report 21509752 (Version 3)
Quarter: 2023Q2

REPORT INFORMATION
  Report Type: Report from Study
  Country: JP (occurrence: JP)
  Receive Date: 20221026
  Receipt Date: 20230526
  Transmission Date: 20230721
  Serious: Yes (Other)
  Sender: FDA-Public Use
  Company Number: JP-JAZZ-2021-JP-023358

PATIENT
  Age: 41 Year
  Sex: Female
  Weight: 50.5 kg

DRUGS (3)
  1. DEFITELIO [Suspect]
     Active Substance: DEFIBROTIDE SODIUM
     Indication: Venoocclusive liver disease
     Dosage: 25 MILLIGRAM/KILOGRAM
     Route: 042
     Dates: start: 20211121, end: 20211230
  2. PREDNISOLONE ACETATE [Concomitant]
     Active Substance: PREDNISOLONE ACETATE
     Indication: Graft versus host disease
     Dosage: UNK
     Dates: start: 20211217, end: 20211231
  3. TEMCELL [Concomitant]
     Indication: Acute graft versus host disease
     Dosage: UNK
     Dates: start: 20211222, end: 20220210

REACTIONS (2)
  - Haematochezia [Recovering/Resolving]
  - Acute graft versus host disease [Recovering/Resolving]

NARRATIVE: CASE EVENT DATE: 20111211
